FAERS Safety Report 8960510 (Version 1)
Quarter: 2012Q4

REPORT INFORMATION
  Report Type: Spontaneous
  Country: US (occurrence: None)
  Receive Date: 20121207
  Receipt Date: 20121207
  Transmission Date: 20130627
  Serious: Yes (Other)
  Sender: FDA-Public Use
  Company Number: None

PATIENT
  Age: 75 Year
  Sex: Male
  Weight: 72.58 kg

DRUGS (14)
  1. WARFARIN [Suspect]
     Indication: ATRIAL FIBRILLATION
     Dosage: 5mg  M + F, 2.5mg  ROW Daily po
     Route: 048
  2. WARFARIN [Suspect]
     Indication: ATRIAL FIBRILLATION
     Route: 048
  3. VOTRIENT [Suspect]
     Indication: SARCOMA
     Dosage: 800mg Daily po
     Route: 048
  4. ATENOLOL [Concomitant]
  5. CYCLOBENZAPRINE [Concomitant]
  6. INSULIN GLARGINE [Concomitant]
  7. METFORMIN [Concomitant]
  8. OMEPRAZOLE [Concomitant]
  9. PLYETHYLENE GLYCOL [Concomitant]
  10. PROPAFENONE [Concomitant]
  11. TIMOLOL [Concomitant]
  12. WARFARIN [Concomitant]
  13. ZOLPIDEM [Concomitant]
  14. HYDROCODONE/ACETAMINOPHEN [Concomitant]

REACTIONS (2)
  - Drug interaction [None]
  - International normalised ratio increased [None]
